FAERS Safety Report 7751336-8 (Version None)
Quarter: 2011Q3

REPORT INFORMATION
  Report Type: 
  Country: None (occurrence: None)
  Receive Date: 20110914
  Receipt Date: 20100702
  Transmission Date: 20111222
  Serious: Yes (Death, Hospitalization)
  Sender: FDA-Public Use
  Company Number: PHHY2011TW25144

PATIENT
  Sex: Male

DRUGS (2)
  1. TASIGNA [Suspect]
     Dosage: 4 DF, PER DAY
     Route: 065
     Dates: start: 20100601
  2. GLEEVEC [Suspect]
     Indication: GASTROINTESTINAL STROMAL TUMOUR
     Dosage: 800 MG, DAILY
     Route: 048
     Dates: start: 20060519

REACTIONS (8)
  - DYSPNOEA EXERTIONAL [None]
  - ERYTHEMA [None]
  - DRY SKIN [None]
  - CEREBROVASCULAR ACCIDENT [None]
  - GASTROINTESTINAL STROMAL TUMOUR [None]
  - NEOPLASM MALIGNANT [None]
  - OEDEMA [None]
  - ANAEMIA [None]
